FAERS Safety Report 16624099 (Version 1)
Quarter: 2019Q3

REPORT INFORMATION
  Report Type: Spontaneous
  Country: US (occurrence: US)
  Receive Date: 20190724
  Receipt Date: 20190724
  Transmission Date: 20191004
  Serious: No
  Sender: FDA-Public Use
  Company Number: US-ASTRAZENECA-2019SE93146

PATIENT
  Sex: Female
  Weight: 102.5 kg

DRUGS (5)
  1. MULTIVITAMIN [Concomitant]
     Active Substance: VITAMINS
     Indication: HYPOVITAMINOSIS
     Route: 048
  2. BIOTIN [Concomitant]
     Active Substance: BIOTIN
     Indication: SUPPLEMENTATION THERAPY
     Route: 048
     Dates: start: 2009
  3. XIGDUO XR [Suspect]
     Active Substance: DAPAGLIFLOZIN PROPANEDIOL\METFORMIN HYDROCHLORIDE
     Indication: GLYCOSYLATED HAEMOGLOBIN ABNORMAL
     Dosage: DAILY
     Route: 048
     Dates: start: 2018, end: 2018
  4. XIGDUO XR [Suspect]
     Active Substance: DAPAGLIFLOZIN PROPANEDIOL\METFORMIN HYDROCHLORIDE
     Indication: GLYCOSYLATED HAEMOGLOBIN ABNORMAL
     Dosage: DAILY
     Route: 048
     Dates: start: 2018
  5. FISH OIL [Concomitant]
     Active Substance: FISH OIL
     Indication: MENOPAUSE
     Dates: start: 2011

REACTIONS (6)
  - Alopecia [Not Recovered/Not Resolved]
  - Inflammation [Unknown]
  - Alopecia [Unknown]
  - Pruritus [Recovered/Resolved]
  - Erythema [Unknown]
  - Androgenetic alopecia [Unknown]
